FAERS Safety Report 17599394 (Version 4)
Quarter: 2020Q2

REPORT INFORMATION
  Report Type: Spontaneous
  Country: US (occurrence: US)
  Receive Date: 20200330
  Receipt Date: 20200619
  Transmission Date: 20200713
  Serious: Yes (Hospitalization)
  Sender: FDA-Public Use
  Company Number: US-VERTEX PHARMACEUTICALS-2020-006956

PATIENT
  Age: 2 Year
  Sex: Male
  Weight: 15.6 kg

DRUGS (14)
  1. PULMOZYME [Concomitant]
     Active Substance: DORNASE ALFA
  2. FLOVENT HFA [Concomitant]
     Active Substance: FLUTICASONE PROPIONATE
     Indication: ASTHMA
     Dosage: 2 PUFFS, BID (110MCG/ACTUTION)
  3. ALBUTEROL [SALBUTAMOL] [Concomitant]
     Active Substance: ALBUTEROL
     Dosage: 2.5 ML BID AND INCREASE TO 4 TIMES DAILY AS NEEDED
  4. CULTURELLE KIDS PACKETS [Concomitant]
     Dosage: 1 DOSAGE FORM, BID
     Route: 048
  5. MIRALAX [Concomitant]
     Active Substance: POLYETHYLENE GLYCOL 3350
     Dosage: 8.5 GRAM, QD AS PRN
     Route: 048
  6. VENTOLIN HFA [Concomitant]
     Active Substance: ALBUTEROL SULFATE
     Dosage: 2 PUFFS, BID INCREASED TO 4 TIMES DAILY
  7. ZENPEP [Concomitant]
     Active Substance: PANCRELIPASE AMYLASE\PANCRELIPASE LIPASE\PANCRELIPASE PROTEASE
     Dosage: 1 DOSAGE FORM, QD WITH MEAL AND SNACKS
     Route: 048
  8. FLONASE [Concomitant]
     Active Substance: FLUTICASONE PROPIONATE
     Dosage: 2 SPRAYS, EACH NOSTRIL, QD (50 MCG/ ACTUATION)
  9. ZANTAC [Concomitant]
     Active Substance: RANITIDINE HYDROCHLORIDE
     Dosage: 60 MG, BID
     Route: 048
  10. HYPERSAL [Concomitant]
     Active Substance: SODIUM CHLORIDE
     Dosage: 4 MILLILITER, BID
  11. ORKAMBI [Suspect]
     Active Substance: IVACAFTOR\LUMACAFTOR
     Indication: CYSTIC FIBROSIS
     Dosage: 1 DOSAGE FORM, BID
     Route: 048
     Dates: start: 202002
  12. FLORANEX [Concomitant]
     Active Substance: LACTOBACILLUS ACIDOPHILUS\LACTOBACILLUS DELBRUECKII SUBSP. BULGARICUS
     Dosage: 1 GRAM, BID
     Route: 048
  13. PEDIASURE [CARBOHYDRATES NOS;FATS NOS;MINERAL NOS;PROTEIN;VITAMIN NOS] [Concomitant]
     Dosage: 6.3 BOTTEL , QD
     Route: 048
  14. CLARITIN [Concomitant]
     Active Substance: LORATADINE
     Dosage: 5 MG, QD
     Route: 048

REACTIONS (10)
  - Device malfunction [Recovered/Resolved]
  - Rhinovirus infection [Recovered/Resolved]
  - Infective pulmonary exacerbation of cystic fibrosis [Recovered/Resolved]
  - Nasal discharge discolouration [Recovered/Resolved]
  - Oral candidiasis [Recovered/Resolved]
  - Coronavirus infection [Recovered/Resolved]
  - Decreased appetite [Recovered/Resolved]
  - Eye discharge [Recovered/Resolved]
  - Bowel movement irregularity [Recovered/Resolved]
  - Vitamin D decreased [Unknown]

NARRATIVE: CASE EVENT DATE: 2020
